FAERS Safety Report 11685634 (Version 1)
Quarter: 2015Q4

REPORT INFORMATION
  Report Type: Spontaneous
  Country: FR (occurrence: FR)
  Receive Date: 20151030
  Receipt Date: 20151030
  Transmission Date: 20160304
  Serious: Yes (Other)
  Sender: FDA-Public Use
  Company Number: FR-WATSON-2015-23243

PATIENT
  Age: 53 Year
  Sex: Male

DRUGS (2)
  1. PIROXICAM (UNKNOWN) [Suspect]
     Active Substance: PIROXICAM
     Indication: TENDONITIS
     Dosage: UNK
     Route: 023
     Dates: start: 201206
  2. PROCAINE (UNKNOWN) [Interacting]
     Active Substance: PROCAINE
     Indication: TENDONITIS
     Dosage: UNK
     Route: 023
     Dates: start: 201206

REACTIONS (4)
  - Embolia cutis medicamentosa [Recovered/Resolved]
  - Administration site pain [Recovered/Resolved]
  - Incorrect route of drug administration [Recovered/Resolved]
  - Drug interaction [Recovered/Resolved]

NARRATIVE: CASE EVENT DATE: 201207
